FAERS Safety Report 20895927 (Version 1)
Quarter: 2022Q2

REPORT INFORMATION
  Report Type: Report from Study
  Country: US (occurrence: US)
  Receive Date: 20220531
  Receipt Date: 20220531
  Transmission Date: 20220721
  Serious: Yes (Hospitalization, Other)
  Sender: FDA-Public Use
  Company Number: US-BRISTOL-MYERS SQUIBB COMPANY-2022-044765

PATIENT
  Age: 65 Year
  Sex: Female
  Weight: 97.068 kg

DRUGS (1)
  1. POMALYST [Suspect]
     Active Substance: POMALIDOMIDE
     Indication: Plasma cell myeloma
     Dosage: DAILY  21 0F 28 DAYS, BY MOUTH
     Route: 048
     Dates: start: 202011

REACTIONS (2)
  - Coma [Recovering/Resolving]
  - COVID-19 [Recovering/Resolving]
